FAERS Safety Report 9344471 (Version 1)
Quarter: 2013Q2

REPORT INFORMATION
  Report Type: Spontaneous
  Country: FR (occurrence: FR)
  Receive Date: 20130612
  Receipt Date: 20130612
  Transmission Date: 20140414
  Serious: Yes (Hospitalization)
  Sender: FDA-Public Use
  Company Number: FR-BAXTER-2013BAX020741

PATIENT
  Age: 52 Year
  Sex: Female

DRUGS (7)
  1. ENDOXAN 1000 MG, POUDRE POUR SOLUTION INJECTABLE [Suspect]
     Indication: BREAST CANCER
     Route: 065
  2. ENDOXAN 1000 MG, POUDRE POUR SOLUTION INJECTABLE [Suspect]
     Route: 042
     Dates: start: 20130410, end: 20130410
  3. TAXOTERE [Suspect]
     Indication: BREAST CANCER
     Route: 065
  4. TAXOTERE [Suspect]
     Route: 042
     Dates: start: 20130410, end: 20130410
  5. HERCEPTIN [Suspect]
     Indication: BREAST CANCER
     Route: 065
  6. HERCEPTIN [Suspect]
     Route: 042
     Dates: start: 20130410, end: 20130410
  7. INEXIUM [Suspect]
     Indication: PRODUCT USED FOR UNKNOWN INDICATION
     Route: 048
     Dates: start: 20130410

REACTIONS (5)
  - Urticaria [Recovered/Resolved]
  - Dysphagia [Unknown]
  - Nausea [Unknown]
  - Diarrhoea [Unknown]
  - Malaise [Unknown]
